FAERS Safety Report 6539055-7 (Version None)
Quarter: 2010Q1

REPORT INFORMATION
  Report Type: 
  Country: None (occurrence: None)
  Receive Date: 20100115
  Receipt Date: 20100105
  Transmission Date: 20100710
  Serious: Yes (Hospitalization, Other)
  Sender: FDA-Public Use
  Company Number: PHEH2007US15453

PATIENT
  Sex: Male
  Weight: 61.678 kg

DRUGS (32)
  1. ZOMETA [Suspect]
     Dosage: 3.3 MG, QMO
     Dates: start: 20050419
  2. ZOMETA [Suspect]
     Dosage: 3.5 MG, UNK
     Route: 042
     Dates: start: 20060411
  3. ZOMETA [Suspect]
     Dosage: 4 MG, UNK
     Route: 042
     Dates: start: 20060504
  4. ZANTAC [Concomitant]
  5. DARVOCET-N 100 [Concomitant]
  6. LISINOPRIL [Concomitant]
  7. NIFEDIPINE [Concomitant]
  8. NOVOLIN [Concomitant]
  9. NOVOLOG [Concomitant]
  10. OXYCODONE HCL AND ACETAMINOPHEN [Concomitant]
     Indication: PAIN
  11. THALIDOMIDE [Concomitant]
     Dosage: UNK
     Dates: end: 20060101
  12. DECADRON                                /CAN/ [Concomitant]
     Dosage: UNK
     Dates: start: 20040601, end: 20060701
  13. ACYCLOVIR [Concomitant]
     Dosage: 400 MG, BID
     Dates: end: 20051129
  14. MORPHINE SULFATE [Concomitant]
     Indication: PAIN
     Dosage: 10 MG, UNK
     Dates: start: 20050126
  15. FLUCONAZOLE [Concomitant]
     Dosage: 400 MG, DAILY
  16. MS CONTIN [Concomitant]
     Dosage: 30 MG, BID
     Route: 048
  17. MORPHINE SULFATE [Concomitant]
     Dosage: 15 MG, PRN
  18. AVELOX [Concomitant]
  19. CEFEPIME [Concomitant]
     Dosage: 2 G, UNK
  20. TRIMETOPRIM-SULFA ^GEA^ [Concomitant]
     Dosage: UNK
     Dates: start: 20060726, end: 20060826
  21. CYPROHEPTADINE [Concomitant]
     Dosage: 4 MG, UNK
     Dates: start: 20050822, end: 20060822
  22. CLINDAMYCIN HYDROCHLORIDE [Concomitant]
     Dosage: 150 MG, UNK
     Route: 048
  23. ARANESP [Concomitant]
     Dosage: 40 MCG/ML, UNK
     Route: 058
  24. NAPROXEN [Concomitant]
     Dosage: 375 MG, UNK
  25. WARFARIN [Concomitant]
     Dosage: 7.5 MG, UNK
  26. MELPHALAN HYDROCHLORIDE [Concomitant]
     Dosage: 200 MG, UNK
     Dates: start: 20050119
  27. MESNA [Concomitant]
     Dosage: 680 MG, UNK
     Route: 042
     Dates: start: 20041228
  28. NEUPOGEN [Concomitant]
     Dosage: 300 MCG
     Dates: start: 20030101, end: 20050112
  29. CYCLOPHOSPHAMIDE [Concomitant]
     Dosage: 6800 MG, UNK
     Route: 042
  30. PERCOCET [Concomitant]
     Dosage: UNK
     Dates: start: 20051101
  31. BACTRIM [Concomitant]
     Dosage: UNK
     Dates: start: 20050101
  32. DEXAMETHASONE TAB [Concomitant]

REACTIONS (27)
  - ABSCESS JAW [None]
  - ANHEDONIA [None]
  - ANXIETY [None]
  - BONE DISORDER [None]
  - BONE LESION [None]
  - BONE SWELLING [None]
  - DEBRIDEMENT [None]
  - DENTAL OPERATION [None]
  - EXTRASKELETAL OSSIFICATION [None]
  - GINGIVAL PAIN [None]
  - INJURY [None]
  - JAW DISORDER [None]
  - JAW OPERATION [None]
  - MASTICATION DISORDER [None]
  - MUCOSAL INFLAMMATION [None]
  - NEUROPATHY PERIPHERAL [None]
  - NEUTROPENIA [None]
  - OSTEONECROSIS [None]
  - OTITIS MEDIA [None]
  - PAIN [None]
  - PAIN IN JAW [None]
  - RECTAL HAEMORRHAGE [None]
  - SALIVARY GLAND ENLARGEMENT [None]
  - STEM CELL TRANSPLANT [None]
  - TOOTH DISORDER [None]
  - TOOTH EXTRACTION [None]
  - WEIGHT DECREASED [None]
